FAERS Safety Report 20345471 (Version 2)
Quarter: 2022Q1

REPORT INFORMATION
  Report Type: Spontaneous
  Country: DE (occurrence: None)
  Receive Date: 20220118
  Receipt Date: 20220119
  Transmission Date: 20220424
  Serious: Yes (Hospitalization)
  Sender: FDA-Public Use
  Company Number: DE-Eisai Medical Research-EC-2022-106675

PATIENT
  Age: 68 Year
  Sex: Male

DRUGS (6)
  1. INOVELON [Suspect]
     Active Substance: RUFINAMIDE
     Indication: Wrong patient received product
     Route: 048
     Dates: start: 20220108, end: 20220108
  2. PRIMIDONE [Suspect]
     Active Substance: PRIMIDONE
     Indication: Wrong patient received product
     Route: 048
     Dates: start: 20220108, end: 20220108
  3. OXCARBAZEPINE [Suspect]
     Active Substance: OXCARBAZEPINE
     Indication: Wrong patient received product
     Route: 048
     Dates: start: 20220108, end: 20220108
  4. FEXOFENADINE HYDROCHLORIDE [Suspect]
     Active Substance: FEXOFENADINE HYDROCHLORIDE
     Indication: Wrong patient received product
     Route: 048
     Dates: start: 20220108, end: 20220108
  5. LEVETIRACETAM [Concomitant]
     Active Substance: LEVETIRACETAM
     Indication: Product used for unknown indication
     Dosage: 1000 MG (FREQUENCY UNKNOWN)
     Route: 065
  6. LAMOTRIGINE [Concomitant]
     Active Substance: LAMOTRIGINE
     Indication: Product used for unknown indication
     Dosage: 100 MG (FREQUENCY UNKNOWN)
     Route: 065

REACTIONS (2)
  - Disturbance in attention [Recovered/Resolved]
  - Wrong patient received product [Recovered/Resolved]

NARRATIVE: CASE EVENT DATE: 20220108
